FAERS Safety Report 5867657-X (Version None)
Quarter: 2008Q3

REPORT INFORMATION
  Report Type: 
  Country: None (occurrence: None)
  Receive Date: 20080902
  Receipt Date: 20080826
  Transmission Date: 20090109
  Serious: Yes (Hospitalization)
  Sender: FDA-Public Use
  Company Number: NL-WYE-H05389408

PATIENT
  Sex: Male
  Weight: 64 kg

DRUGS (1)
  1. TACROLIMUS [Suspect]
     Indication: PROPHYLAXIS AGAINST TRANSPLANT REJECTION
     Route: 048
     Dates: start: 20000529, end: 20080721

REACTIONS (1)
  - ANASTOMOTIC STENOSIS [None]
